FAERS Safety Report 23292962 (Version 5)
Quarter: 2024Q3

REPORT INFORMATION
  Report Type: Report from Study
  Country: US (occurrence: US)
  Receive Date: 20231213
  Receipt Date: 20240906
  Transmission Date: 20241016
  Serious: Yes (Other)
  Sender: PFIZER
  Company Number: US-PFIZER INC-202300434852

PATIENT
  Age: 61 Year
  Sex: Female

DRUGS (3)
  1. IBRANCE [Suspect]
     Active Substance: PALBOCICLIB
     Dosage: D 1 -21 Q 28 DAYS
     Route: 048
     Dates: start: 202309
  2. IBRANCE [Suspect]
     Active Substance: PALBOCICLIB
     Dosage: 1 TABLET D 1 -21 Q 28 DAYS
     Route: 048
  3. IBRANCE [Suspect]
     Active Substance: PALBOCICLIB
     Dosage: 100MG TABLETS D1-27 EVERY 28 DAYS
     Route: 048
     Dates: start: 202309

REACTIONS (3)
  - Clostridium difficile infection [Recovering/Resolving]
  - Endodontic procedure [Recovering/Resolving]
  - Pelvic fracture [Recovering/Resolving]
